FAERS Safety Report 14097728 (Version 1)
Quarter: 2017Q4

REPORT INFORMATION
  Report Type: Spontaneous
  Country: US (occurrence: US)
  Receive Date: 20171016
  Receipt Date: 20171016
  Transmission Date: 20180321
  Serious: No
  Sender: FDA-Public Use
  Company Number: US-AMGEN-USASP2017007586

PATIENT
  Age: 78 Year
  Sex: Female

DRUGS (2)
  1. CORTIZONE 10 [Concomitant]
     Active Substance: HYDROCORTISONE
     Indication: MUSCULOSKELETAL DISCOMFORT
     Dosage: UNK
     Dates: start: 201510
  2. PROLIA [Suspect]
     Active Substance: DENOSUMAB
     Indication: OSTEOPOROSIS POSTMENOPAUSAL
     Dosage: 60 MG, Q6MO
     Route: 065
     Dates: start: 201511

REACTIONS (3)
  - Tooth disorder [Unknown]
  - Rash erythematous [Recovered/Resolved]
  - Rash [Unknown]

NARRATIVE: CASE EVENT DATE: 201511
